FAERS Safety Report 19599056 (Version 1)
Quarter: 2021Q3

REPORT INFORMATION
  Report Type: Spontaneous
  Country: US (occurrence: US)
  Receive Date: 20210723
  Receipt Date: 20210723
  Transmission Date: 20211014
  Serious: Yes (Other)
  Sender: FDA-Public Use
  Company Number: None

PATIENT
  Age: 38 Year
  Sex: Female
  Weight: 83.25 kg

DRUGS (6)
  1. IUD NOS [Concomitant]
     Active Substance: COPPER OR LEVONORGESTREL
  2. CONTRAVE [Suspect]
     Active Substance: BUPROPION HYDROCHLORIDE\NALTREXONE HYDROCHLORIDE
     Indication: WEIGHT DECREASED
     Dosage: ?          QUANTITY:1 TABLET(S);?
     Route: 048
  3. XANAX [Concomitant]
     Active Substance: ALPRAZOLAM
  4. MAXALT [Concomitant]
     Active Substance: RIZATRIPTAN BENZOATE
  5. MULTIVITAMIN [Concomitant]
     Active Substance: VITAMINS
  6. IBUPROFEN. [Concomitant]
     Active Substance: IBUPROFEN

REACTIONS (10)
  - Anxiety [None]
  - Panic disorder [None]
  - Social anxiety disorder [None]
  - Agoraphobia [None]
  - Intentional product use issue [None]
  - Nausea [None]
  - Emotional distress [None]
  - Panic attack [None]
  - Fatigue [None]
  - Crying [None]

NARRATIVE: CASE EVENT DATE: 20210610
